FAERS Safety Report 6547500-6 (Version None)
Quarter: 2010Q1

REPORT INFORMATION
  Report Type: 
  Country: None (occurrence: None)
  Receive Date: 20100122
  Receipt Date: 20100112
  Transmission Date: 20100710
  Serious: Yes (Other)
  Sender: FDA-Public Use
  Company Number: IL-WATSON-2010-00592

PATIENT
  Age: 16 Year
  Sex: Female

DRUGS (2)
  1. FORTAMET [Suspect]
     Indication: BLOOD GLUCOSE INCREASED
     Dosage: 22 G, DAILY
  2. SIMVASTATIN [Suspect]
     Indication: DRUG USE FOR UNKNOWN INDICATION
     Dosage: 200 MG, UNK

REACTIONS (5)
  - DIABETES INSIPIDUS [None]
  - OVERDOSE [None]
  - PANCREATITIS [None]
  - RENAL FAILURE [None]
  - VOMITING [None]
